FAERS Safety Report 12039003 (Version 1)
Quarter: 2016Q1

REPORT INFORMATION
  Report Type: Spontaneous
  Country: US (occurrence: None)
  Receive Date: 20160205
  Receipt Date: 20160205
  Transmission Date: 20160526
  Serious: Yes (Other)
  Sender: FDA-Public Use
  Company Number: None

PATIENT
  Age: 60 Year
  Sex: Male
  Weight: 98.64 kg

DRUGS (2)
  1. HARVONI [Suspect]
     Active Substance: LEDIPASVIR\SOFOSBUVIR
     Dosage: 90MG/400MG QD ORAL
     Route: 048
     Dates: start: 20150112, end: 20150406
  2. RIBAVIRIN 1200MG [Suspect]
     Active Substance: RIBAVIRIN
     Route: 048
     Dates: start: 20150112, end: 20150406

REACTIONS (1)
  - Incorrect dose administered [None]

NARRATIVE: CASE EVENT DATE: 20150112
